FAERS Safety Report 6939511-3 (Version None)
Quarter: 2010Q3

REPORT INFORMATION
  Report Type: 
  Country: None (occurrence: None)
  Receive Date: 20100819
  Receipt Date: 20100809
  Transmission Date: 20110219
  Serious: Yes (Hospitalization)
  Sender: FDA-Public Use
  Company Number: 016178

PATIENT
  Sex: Female
  Weight: 56 kg

DRUGS (6)
  1. VIMPAT [Suspect]
     Dosage: 150 MG BID ORAL
     Route: 048
  2. LEVETIRACETAM [Concomitant]
  3. CARBAMAZEPINE [Concomitant]
  4. VALPROATE SODIUM [Concomitant]
  5. CLOBAZAM [Concomitant]
  6. QUETIAPINE [Concomitant]

REACTIONS (4)
  - ABNORMAL BEHAVIOUR [None]
  - OBSESSIVE-COMPULSIVE DISORDER [None]
  - PARANOIA [None]
  - PSYCHOTIC DISORDER [None]
